FAERS Safety Report 6221259-4 (Version None)
Quarter: 2009Q2

REPORT INFORMATION
  Report Type: 
  Country: None (occurrence: None)
  Receive Date: 20090610
  Receipt Date: 20090603
  Transmission Date: 20091009
  Serious: Yes (Other)
  Sender: FDA-Public Use
  Company Number: AT-MERCK-0904AUT00007

PATIENT
  Age: 85 Year
  Sex: Female

DRUGS (4)
  1. FOSAMAX [Suspect]
     Indication: OSTEOPOROSIS
     Route: 048
     Dates: start: 20050101, end: 20090101
  2. LEVOTHYROXINE SODIUM [Concomitant]
     Route: 048
  3. RIVASTIGMINE [Concomitant]
     Route: 048
  4. ASPIRIN [Concomitant]
     Route: 048

REACTIONS (2)
  - IMPAIRED HEALING [None]
  - TOOTHACHE [None]
